FAERS Safety Report 17746278 (Version 2)
Quarter: 2020Q2

REPORT INFORMATION
  Report Type: Spontaneous
  Country: US (occurrence: US)
  Receive Date: 20200505
  Receipt Date: 20200608
  Transmission Date: 20200714
  Serious: Yes (Other)
  Sender: FDA-Public Use
  Company Number: US-MEDEXUS PHARMA, INC.-2020MED00071

PATIENT
  Age: 62 Year
  Sex: Female
  Weight: 74.38 kg

DRUGS (2)
  1. RASUVO [Suspect]
     Active Substance: METHOTREXATE SODIUM
     Indication: RHEUMATOID ARTHRITIS
     Dosage: 20 MG, 1X/WEEK ON MONDAY INJECTED INTO THIGH
     Dates: start: 2017
  2. UNSPECIFIED MEDICATIONS [Concomitant]
     Active Substance: UNSPECIFIED INGREDIENT

REACTIONS (6)
  - Rheumatoid nodule [Not Recovered/Not Resolved]
  - Weight increased [Recovered/Resolved]
  - Device failure [Recovered/Resolved]
  - Decreased activity [Recovered/Resolved]
  - Rheumatoid arthritis [Unknown]
  - Accidental exposure to product [Recovered/Resolved]

NARRATIVE: CASE EVENT DATE: 201806
